FAERS Safety Report 20346184 (Version 3)
Quarter: 2022Q3

REPORT INFORMATION
  Report Type: Report from Study
  Country: US (occurrence: None)
  Receive Date: 20220118
  Receipt Date: 20220706
  Transmission Date: 20221026
  Serious: Yes (Other)
  Sender: FDA-Public Use
  Company Number: US-Merck Healthcare KGaA-9290465

PATIENT
  Age: 41 Year
  Sex: Female

DRUGS (4)
  1. MAVENCLAD [Suspect]
     Active Substance: CLADRIBINE
     Indication: Multiple sclerosis
     Dosage: YEAR ONE MONTH ONE THERAPY
     Route: 048
     Dates: start: 20211226, end: 20211230
  2. MAVENCLAD [Suspect]
     Active Substance: CLADRIBINE
     Dosage: YEAR ONE MONTH TWO THERAPY
     Route: 048
     Dates: start: 20220127, end: 20220131
  3. ACYCLOVIR [Concomitant]
     Active Substance: ACYCLOVIR
     Indication: Product used for unknown indication
  4. NUVIGIL [Concomitant]
     Active Substance: ARMODAFINIL
     Indication: Disturbance in attention

REACTIONS (19)
  - Multiple sclerosis pseudo relapse [Recovering/Resolving]
  - White blood cell count decreased [Recovered/Resolved]
  - Swelling face [Unknown]
  - Herpes zoster [Unknown]
  - Rash papular [Recovered/Resolved]
  - Pruritus [Unknown]
  - Nausea [Recovering/Resolving]
  - Sensory disturbance [Unknown]
  - Feeling abnormal [Unknown]
  - Feeling cold [Unknown]
  - Headache [Recovering/Resolving]
  - Cough [Unknown]
  - Allergic cough [Unknown]
  - Upper-airway cough syndrome [Unknown]
  - Chapped lips [Unknown]
  - Stomatitis [Unknown]
  - Pain [Not Recovered/Not Resolved]
  - Dry skin [Unknown]
  - Stress [Unknown]

NARRATIVE: CASE EVENT DATE: 20211201
